FAERS Safety Report 10634790 (Version 2)
Quarter: 2015Q1

REPORT INFORMATION
  Report Type: Spontaneous
  Country: FR (occurrence: FR)
  Receive Date: 20141205
  Receipt Date: 20150115
  Transmission Date: 20150720
  Serious: Yes (Hospitalization)
  Sender: FDA-Public Use
  Company Number: FR-PFIZER INC-2014329159

PATIENT
  Age: 89 Year
  Sex: Male
  Weight: 86.5 kg

DRUGS (21)
  1. INEXIUM /01479302/ [Concomitant]
     Active Substance: ESOMEPRAZOLE MAGNESIUM
     Dosage: 20 MG, 1X/DAY
     Route: 048
  2. DUROGESIC [Concomitant]
     Active Substance: FENTANYL
     Dosage: 25 MCG EVERY 72 HOURS, CYCLIC
     Route: 062
     Dates: start: 201409, end: 20141004
  3. SOLU-MEDROL [Interacting]
     Active Substance: METHYLPREDNISOLONE SODIUM SUCCINATE
     Indication: ARTHRALGIA
  4. SEROPLEX [Concomitant]
     Active Substance: ESCITALOPRAM OXALATE
     Dosage: 10 MG, 1X/DAY
     Route: 048
  5. ADVIL [Concomitant]
     Active Substance: IBUPROFEN
     Dosage: UNK, 2X/DAY
  6. PREVISCAN [Suspect]
     Active Substance: FLUINDIONE
     Dosage: 5 MG ON EVEN DAYS, 10 MG ON ODD DAYS
     Route: 048
  7. CORTANCYL [Interacting]
     Active Substance: PREDNISONE
     Indication: POLYARTHRITIS
     Dosage: 30 MG, 1X/DAY
     Route: 048
     Dates: start: 201409, end: 20140924
  8. TAVANIC [Interacting]
     Active Substance: LEVOFLOXACIN
     Indication: SKIN BACTERIAL INFECTION
     Dosage: 500 MG, SINGLE
     Route: 048
     Dates: start: 20140929, end: 20140929
  9. LASILIX [Concomitant]
     Active Substance: FUROSEMIDE
     Dosage: 40 MG, 1X/DAY
     Route: 048
     Dates: end: 20141015
  10. BISOCE [Concomitant]
     Active Substance: BISOPROLOL
     Dosage: 2.5 MG, 1X/DAY
     Route: 048
  11. SOLU-MEDROL [Suspect]
     Active Substance: METHYLPREDNISOLONE SODIUM SUCCINATE
     Indication: INFLAMMATION
     Dosage: 40 MG, 1X/DAY
     Route: 042
     Dates: start: 201408, end: 201409
  12. CORDARONE [Concomitant]
     Active Substance: AMIODARONE HYDROCHLORIDE
     Dosage: 200 MG, 1X/DAY
     Route: 048
     Dates: end: 20141004
  13. XATRAL [Concomitant]
     Active Substance: ALFUZOSIN
     Dosage: 10 MG, 1X/DAY
     Route: 048
  14. ORBENINE [Concomitant]
     Active Substance: CLOXACILLIN SODIUM
     Dosage: 2 G, 4X/DAY
     Dates: start: 20140929
  15. STILNOX [Concomitant]
     Active Substance: ZOLPIDEM TARTRATE
     Dosage: 10 MG, 1X/DAY
  16. DOLIPRANE [Concomitant]
     Active Substance: ACETAMINOPHEN
     Dosage: 1000 MG, 3X/DAY
     Route: 048
  17. OXYNORMORO [Concomitant]
     Active Substance: OXYCODONE
     Dosage: 5 MG, 3X/DAY
     Route: 048
     Dates: start: 201409
  18. CRESTOR [Interacting]
     Active Substance: ROSUVASTATIN CALCIUM
     Indication: HYPERCHOLESTEROLAEMIA
     Dosage: 5 MG, 1X/DAY
     Route: 048
     Dates: end: 20141004
  19. TAVANIC [Interacting]
     Active Substance: LEVOFLOXACIN
     Dosage: 250 MG, DAILY
     Route: 048
     Dates: start: 20140930, end: 20141004
  20. FORLAX [Concomitant]
     Active Substance: POLYETHYLENE GLYCOL 4000
     Dosage: 10 G, 1X/DAY
     Route: 048
  21. HYDROCORTISONE. [Interacting]
     Active Substance: HYDROCORTISONE
     Indication: POLYARTHRITIS
     Dosage: 60 MG, 1X/DAY
     Route: 042
     Dates: start: 20140924, end: 20141006

REACTIONS (3)
  - Tendon disorder [Recovered/Resolved]
  - Haemarthrosis [Recovered/Resolved]
  - Drug interaction [Recovered/Resolved]

NARRATIVE: CASE EVENT DATE: 201409
